FAERS Safety Report 4816057-X (Version None)
Quarter: 2005Q4

REPORT INFORMATION
  Report Type: 
  Country: None (occurrence: None)
  Receive Date: 20051031
  Receipt Date: 20051005
  Transmission Date: 20060501
  Serious: Yes (Hospitalization)
  Sender: FDA-Public Use
  Company Number: US-ROCHE-420112

PATIENT
  Age: 39 Year
  Sex: Male
  Weight: 69.9 kg

DRUGS (2)
  1. PEG-INTERFERON ALFA 2A (RO 25-8310) [Suspect]
     Dosage: FORM REPORTED AS INJECTABLE SOLUTION.
     Route: 058
     Dates: end: 20050628
  2. RIBAVIRIN [Suspect]
     Route: 048
     Dates: end: 20050628

REACTIONS (4)
  - CONCUSSION [None]
  - CONTUSION [None]
  - LACERATION [None]
  - SYNCOPE [None]
